FAERS Safety Report 9435836 (Version 2)
Quarter: 2013Q3

REPORT INFORMATION
  Report Type: Report from Study
  Country: DE (occurrence: DE)
  Receive Date: 20130801
  Receipt Date: 20130815
  Transmission Date: 20140515
  Serious: Yes (Hospitalization)
  Sender: FDA-Public Use
  Company Number: DE-ABBOTT-13P-062-1124577-00

PATIENT
  Age: 65 Year
  Sex: Female

DRUGS (4)
  1. HUMIRA [Suspect]
     Indication: PSORIASIS
     Route: 058
     Dates: start: 20090603, end: 201210
  2. HUMIRA [Suspect]
     Route: 058
     Dates: start: 201211
  3. HUMIRA [Suspect]
     Indication: PSORIASIS
  4. TARGIN [Concomitant]
     Indication: PRODUCT USED FOR UNKNOWN INDICATION
     Dosage: 0-0-1

REACTIONS (1)
  - Lumbar spinal stenosis [Not Recovered/Not Resolved]
